FAERS Safety Report 6645339-4 (Version None)
Quarter: 2010Q1

REPORT INFORMATION
  Report Type: 
  Country: None (occurrence: None)
  Receive Date: 20100322
  Receipt Date: 20100310
  Transmission Date: 20100710
  Serious: Yes (Life-Threatening, Hospitalization)
  Sender: FDA-Public Use
  Company Number: FR-AMGEN-US399525

PATIENT
  Sex: Female
  Weight: 60 kg

DRUGS (9)
  1. ENBREL [Suspect]
     Indication: RHEUMATOID ARTHRITIS
     Route: 058
     Dates: start: 20010101, end: 20100101
  2. ENBREL [Suspect]
     Indication: ARTHROPATHY
  3. LEVOTHYROX [Concomitant]
     Route: 048
  4. UVEDOSE [Concomitant]
     Dosage: UNKNOWN
     Route: 065
  5. MOBIC [Concomitant]
     Route: 048
  6. ACTONEL [Concomitant]
     Route: 048
  7. DOLIPRANE [Concomitant]
     Dosage: UNKNOWN
     Route: 065
  8. CORTANCYL [Concomitant]
     Dosage: 5 MG TOTAL DAILY
     Route: 065
  9. COKENZEN [Concomitant]
     Dosage: UNKNOWN
     Route: 048

REACTIONS (1)
  - AMYOTROPHIC LATERAL SCLEROSIS [None]
